FAERS Safety Report 6265115-4 (Version None)
Quarter: 2009Q3

REPORT INFORMATION
  Report Type: 
  Country: None (occurrence: None)
  Receive Date: 20090713
  Receipt Date: 20080916
  Transmission Date: 20100115
  Serious: Yes (Death)
  Sender: FDA-Public Use
  Company Number: US-TYCO HEALTHCARE/MALLINCKRODT-T200801518

PATIENT

DRUGS (3)
  1. MORPHINE [Suspect]
  2. VICODIN [Suspect]
  3. VALIUM [Suspect]

REACTIONS (1)
  - ACCIDENTAL OVERDOSE [None]
